FAERS Safety Report 6271173-3 (Version None)
Quarter: 2009Q3

REPORT INFORMATION
  Report Type: 
  Country: None (occurrence: None)
  Receive Date: 20090717
  Receipt Date: 20090708
  Transmission Date: 20100115
  Serious: Yes (Life-Threatening, Hospitalization)
  Sender: FDA-Public Use
  Company Number: FR-BIOGENIDEC-2009BI020943

PATIENT
  Age: 55 Year
  Sex: Female

DRUGS (11)
  1. TYSABRI [Suspect]
     Indication: MULTIPLE SCLEROSIS
     Route: 042
     Dates: start: 20071128
  2. DILTIAZEM [Concomitant]
  3. BISOPROLOL FUMARATE [Concomitant]
  4. SEGLOR [Concomitant]
  5. TIAPRIDAL [Concomitant]
  6. METFORMIN HCL [Concomitant]
  7. INEGY [Concomitant]
  8. IMODIUM [Concomitant]
  9. EFFERALGAN [Concomitant]
  10. LAROXYL [Concomitant]
  11. LEXOMIL [Concomitant]

REACTIONS (1)
  - AFFECTIVE DISORDER [None]
